FAERS Safety Report 5434287-3 (Version None)
Quarter: 2007Q3

REPORT INFORMATION
  Report Type: 
  Country: None (occurrence: None)
  Receive Date: 20070829
  Receipt Date: 20070821
  Transmission Date: 20080115
  Serious: Yes (Other)
  Sender: FDA-Public Use
  Company Number: MEDI-0005890

PATIENT
  Age: 56 Year
  Sex: Male

DRUGS (3)
  1. ETHYOL [Suspect]
     Indication: LARYNGEAL CANCER
     Dosage: 500 MG, 1 IN 1 D, INTRAVENOUS (NOT OTHERWISE SPECIFIED)
     Route: 042
     Dates: start: 20070717, end: 20070721
  2. FLUOROURACIL [Concomitant]
  3. MITOMYCIN [Concomitant]

REACTIONS (3)
  - BLOOD PRESSURE IMMEASURABLE [None]
  - LOSS OF CONSCIOUSNESS [None]
  - PULSE ABSENT [None]
